FAERS Safety Report 10390620 (Version 1)
Quarter: 2014Q3

REPORT INFORMATION
  Report Type: Spontaneous
  Country: GB (occurrence: None)
  Receive Date: 20140814
  Receipt Date: 20140814
  Transmission Date: 20150326
  Serious: Yes (Life-Threatening, Other)
  Sender: FDA-Public Use
  Company Number: AUR-APL-2014-08510

PATIENT
  Age: 35 Year
  Sex: Male
  Weight: 88 kg

DRUGS (1)
  1. MIRTAZAPINE. [Suspect]
     Active Substance: MIRTAZAPINE
     Indication: ANXIETY
     Route: 048
     Dates: start: 20140714, end: 20140728

REACTIONS (4)
  - Screaming [None]
  - Frustration [None]
  - Violence-related symptom [None]
  - Anger [None]

NARRATIVE: CASE EVENT DATE: 20140715
